FAERS Safety Report 4596970-1 (Version None)
Quarter: 2005Q1

REPORT INFORMATION
  Report Type: 
  Country: None (occurrence: None)
  Receive Date: 20050302
  Receipt Date: 20050221
  Transmission Date: 20050727
  Serious: Yes (Hospitalization, Other)
  Sender: FDA-Public Use
  Company Number: US-ABBOTT-05P-163-0291633-00

PATIENT
  Sex: Female
  Weight: 104 kg

DRUGS (3)
  1. MERIDIA [Suspect]
     Indication: WEIGHT CONTROL
     Route: 048
     Dates: start: 20020901, end: 20030301
  2. MERIDIA [Suspect]
     Dates: start: 20031001, end: 20040201
  3. CITALOPRAM [Concomitant]
     Indication: DEPRESSION
     Route: 048
     Dates: start: 20010101

REACTIONS (5)
  - CHEST PAIN [None]
  - CORONARY ARTERY OCCLUSION [None]
  - GASTRIC HAEMORRHAGE [None]
  - MYOCARDIAL INFARCTION [None]
  - TACHYCARDIA [None]
